FAERS Safety Report 7425562-1 (Version None)
Quarter: 2011Q2

REPORT INFORMATION
  Report Type: 
  Country: None (occurrence: None)
  Receive Date: 20110420
  Receipt Date: 20110418
  Transmission Date: 20111010
  Serious: Yes (Other)
  Sender: FDA-Public Use
  Company Number: JP-PFIZER INC-2011084882

PATIENT
  Age: 49 Year
  Sex: Female

DRUGS (5)
  1. ALDACTONE [Suspect]
     Dosage: 25 MG, 1X/DAY
     Route: 048
  2. SEROQUEL [Concomitant]
     Dosage: 25 MG, 1X/DAY
     Dates: end: 20101207
  3. FUROSEMIDE [Concomitant]
     Dosage: 20 MG, 1X/DAY
  4. TAKEPRON [Concomitant]
     Dosage: 15 MG, 1X/DAY
     Route: 048
  5. ALEVIATIN [Concomitant]
     Dosage: UNK
     Dates: end: 20101208

REACTIONS (1)
  - TOXIC SKIN ERUPTION [None]
